FAERS Safety Report 8559920-9 (Version None)
Quarter: 2012Q3

REPORT INFORMATION
  Report Type: 
  Country: None (occurrence: None)
  Receive Date: 20120802
  Receipt Date: 20120730
  Transmission Date: 20120928
  Serious: Yes (Other)
  Sender: FDA-Public Use
  Company Number: PHEH2011US04542

PATIENT
  Sex: Female

DRUGS (16)
  1. VIOXX [Concomitant]
     Dosage: 25 MG, QD
  2. VANCOMYCIN [Concomitant]
  3. MS CONTIN [Concomitant]
     Dosage: 90 MG, BID
  4. ATIVAN [Concomitant]
     Dosage: UNK UKN, UNK
  5. AREDIA [Suspect]
  6. XELODA [Concomitant]
     Dosage: 500 MG, THREE TABLETS BID
  7. FLUCONAZOLE [Concomitant]
  8. TAXOTERE [Concomitant]
  9. TYLOX [Concomitant]
  10. DEMEROL [Concomitant]
  11. PHENERGAN HCL [Concomitant]
     Dosage: 25 MG, PRN
     Route: 048
  12. PRIMAXIN [Concomitant]
  13. INAPSINE [Concomitant]
  14. DILAUDID [Concomitant]
     Dosage: 4 MILLIGRAMS TWO TO THREE TIMES PER DAY
  15. ADRIAMYCIN PFS [Concomitant]
  16. COMPAZINE [Concomitant]
     Dosage: 10 MG, PRN,Q6H

REACTIONS (26)
  - FEBRILE NEUTROPENIA [None]
  - ATELECTASIS [None]
  - SPINAL COLUMN STENOSIS [None]
  - ASTHENIA [None]
  - CONFUSIONAL STATE [None]
  - GASTROOESOPHAGEAL REFLUX DISEASE [None]
  - SUPRAPUBIC PAIN [None]
  - DYSPNOEA [None]
  - GASTRIC ULCER [None]
  - CHILLS [None]
  - PATHOLOGICAL FRACTURE [None]
  - RENAL CYST [None]
  - NAUSEA [None]
  - DYSPHAGIA [None]
  - HIATUS HERNIA [None]
  - PNEUMONIA [None]
  - PLEURAL EFFUSION [None]
  - CHOLELITHIASIS [None]
  - DIARRHOEA [None]
  - DEHYDRATION [None]
  - CONSTIPATION [None]
  - MUSCULOSKELETAL CHEST PAIN [None]
  - PAINFUL RESPIRATION [None]
  - LUNG INFILTRATION [None]
  - ABDOMINAL PAIN UPPER [None]
  - BACK PAIN [None]
